FAERS Safety Report 8427176-3 (Version None)
Quarter: 2012Q2

REPORT INFORMATION
  Report Type: 
  Country: None (occurrence: None)
  Receive Date: 20120611
  Receipt Date: 20120531
  Transmission Date: 20120825
  Serious: Yes (Hospitalization)
  Sender: FDA-Public Use
  Company Number: US-JNJFOC-20120601678

PATIENT
  Sex: Female
  Weight: 12.7 kg

DRUGS (26)
  1. REMICADE [Suspect]
     Indication: CROHN'S DISEASE
     Route: 042
     Dates: start: 20090905
  2. TPN [Concomitant]
  3. CASPOFUNGIN ACETATE [Concomitant]
  4. BUSULFAN [Concomitant]
  5. FLUDARABINE PHOSPHATE [Concomitant]
  6. ACETYLCYSTEINE [Concomitant]
  7. CEFTRIAXONE [Concomitant]
  8. LEUKINE [Concomitant]
     Dates: start: 20100222
  9. ANTI-THYMOCYTE GLOBULIN NOS [Concomitant]
  10. VANCOMYCIN HCL [Concomitant]
  11. PREVACID [Concomitant]
  12. GLUTAMINE [Concomitant]
  13. ZOFRAN [Concomitant]
  14. IRON [Concomitant]
  15. ACETAMINOPHEN [Concomitant]
  16. ALBUTEROL [Concomitant]
  17. VITAMIN K TAB [Concomitant]
  18. CEFEPIME [Concomitant]
  19. ACYCLOVIR [Concomitant]
  20. FLUCONAZOLE [Concomitant]
  21. BENADRYL [Concomitant]
  22. TOBRAMYCIN [Concomitant]
  23. KETAMINE HCL [Concomitant]
  24. CEPTAZ [Concomitant]
  25. URSODIOL [Concomitant]
  26. ACTIGALL [Concomitant]

REACTIONS (1)
  - PNEUMONIA ASPIRATION [None]
